FAERS Safety Report 12306920 (Version 1)
Quarter: 2016Q2

REPORT INFORMATION
  Report Type: Other
  Country: GB (occurrence: GB)
  Receive Date: 20160426
  Receipt Date: 20160426
  Transmission Date: 20160815
  Serious: Yes (Other)
  Sender: FDA-Public Use
  Company Number: GB-PERRIGO-16GB015325

PATIENT

DRUGS (2)
  1. LORATADINE 1MG/ML 16028/0099 [Suspect]
     Active Substance: LORATADINE
     Indication: ARTHROPOD BITE
     Dosage: 1 DF, UNK
     Route: 048
  2. LEVOTHYROXINE. [Concomitant]
     Active Substance: LEVOTHYROXINE
     Indication: PRODUCT USED FOR UNKNOWN INDICATION
     Dosage: 125 ?G, UNK
     Route: 065

REACTIONS (6)
  - Dizziness [Recovered/Resolved]
  - Dry mouth [Recovered/Resolved]
  - Speech disorder [Recovered/Resolved]
  - Malaise [Unknown]
  - Confusional state [Recovered/Resolved]
  - Palpitations [Recovered/Resolved]
